FAERS Safety Report 8088086-7 (Version None)
Quarter: 2012Q1

REPORT INFORMATION
  Report Type: 
  Country: None (occurrence: None)
  Receive Date: 20120131
  Receipt Date: 20120117
  Transmission Date: 20120608
  Serious: Yes (Hospitalization, Other)
  Sender: FDA-Public Use
  Company Number: BR-AMGEN-BRASP2012004195

PATIENT
  Age: 54 Year
  Sex: Female
  Weight: 71 kg

DRUGS (3)
  1. ENBREL [Suspect]
     Indication: RHEUMATOID ARTHRITIS
     Dosage: 50 MG, 1X/WEEK
     Route: 058
     Dates: end: 20120101
  2. AMLODIPINE W/ OLMESARTAN MEDOXOMIL [Concomitant]
     Dosage: 40 MG, UNK
  3. VYTORIN [Concomitant]
     Dosage: UNK

REACTIONS (3)
  - SWELLING FACE [None]
  - RHEUMATOID ARTHRITIS [None]
  - INJECTION SITE PAIN [None]
